FAERS Safety Report 10800737 (Version 2)
Quarter: 2015Q1

REPORT INFORMATION
  Report Type: Spontaneous
  Country: US (occurrence: US)
  Receive Date: 20150216
  Receipt Date: 20150216
  Transmission Date: 20150721
  Serious: No
  Sender: FDA-Public Use
  Company Number: US-ALLERGAN-1424361US

PATIENT
  Sex: Female

DRUGS (2)
  1. RESTASIS [Suspect]
     Active Substance: CYCLOSPORINE
     Indication: DRY EYE
     Dosage: 2 GTT, BID
     Route: 047
     Dates: start: 2014, end: 2014
  2. RESTASIS [Suspect]
     Active Substance: CYCLOSPORINE
     Dosage: 4 GTT, BID
     Route: 047
     Dates: start: 2014, end: 20140726

REACTIONS (9)
  - Photopsia [Recovered/Resolved]
  - Nasal dryness [Recovered/Resolved]
  - Dry eye [Recovered/Resolved]
  - Dry skin [Recovered/Resolved]
  - Cystitis [Unknown]
  - Inappropriate schedule of drug administration [Unknown]
  - Photophobia [Not Recovered/Not Resolved]
  - Abnormal sensation in eye [Recovered/Resolved]
  - Renal pain [Unknown]
